FAERS Safety Report 10064536 (Version 3)
Quarter: 2014Q2

REPORT INFORMATION
  Report Type: Spontaneous
  Country: CH (occurrence: CH)
  Receive Date: 20140408
  Receipt Date: 20140513
  Transmission Date: 20141212
  Serious: Yes (Other)
  Sender: FDA-Public Use
  Company Number: CH-ROCHE-1379678

PATIENT
  Sex: Female

DRUGS (6)
  1. XOLAIR [Suspect]
     Indication: MASTOCYTOSIS
     Dosage: 2X150 MG
     Route: 058
     Dates: start: 20071214
  2. ZANTIC [Concomitant]
     Route: 065
     Dates: start: 2003
  3. AERIUS [Concomitant]
     Route: 065
     Dates: start: 2003
  4. NEXIUM [Concomitant]
     Route: 065
     Dates: start: 2003
  5. PULMICORT [Concomitant]
     Route: 065
     Dates: start: 2003
  6. MAGNESIOCARD [Concomitant]
     Route: 065
     Dates: start: 2003

REACTIONS (5)
  - Anaphylactic reaction [Unknown]
  - Asthmatic crisis [Unknown]
  - Drug effect decreased [Unknown]
  - Off label use [Unknown]
  - Therapeutic response changed [Unknown]
